FAERS Safety Report 7201653-5 (Version None)
Quarter: 2010Q4

REPORT INFORMATION
  Report Type: 
  Country: None (occurrence: None)
  Receive Date: 20101229
  Receipt Date: 20101217
  Transmission Date: 20110411
  Serious: No
  Sender: FDA-Public Use
  Company Number: US-BAYER-2010-006675

PATIENT
  Sex: Female

DRUGS (3)
  1. YAZ [Suspect]
     Indication: ACNE
     Route: 048
  2. YASMIN [Suspect]
     Indication: ACNE
     Route: 048
  3. OCELLA [Suspect]
     Indication: ACNE
     Route: 048

REACTIONS (2)
  - INJURY [None]
  - PAIN [None]
